FAERS Safety Report 18596962 (Version 3)
Quarter: 2021Q1

REPORT INFORMATION
  Report Type: Spontaneous
  Country: US (occurrence: US)
  Receive Date: 20201209
  Receipt Date: 20210203
  Transmission Date: 20210419
  Serious: Yes (Other)
  Sender: FDA-Public Use
  Company Number: US-BAYER-2020-264129

PATIENT
  Age: 28 Year
  Sex: Male

DRUGS (7)
  1. KOGENATE FS [Suspect]
     Active Substance: ANTIHEMOPHILIC FACTOR, HUMAN RECOMBINANT
     Dosage: 1 DF PRE?OP FOR LEFT ANKLE DEBRIDEMENT
     Route: 042
     Dates: start: 20201207, end: 20201207
  2. KOGENATE FS [Suspect]
     Active Substance: ANTIHEMOPHILIC FACTOR, HUMAN RECOMBINANT
     Dosage: 1 DF, BID; Q12H FOR 2 DAYS IN A ROWFOR LEFT ANKLE DEBRIDEMENT
     Route: 042
  3. KOGENATE FS [Suspect]
     Active Substance: ANTIHEMOPHILIC FACTOR, HUMAN RECOMBINANT
     Dosage: 1922 U; FOR TREATMENT
     Route: 042
  4. KOGENATE FS [Suspect]
     Active Substance: ANTIHEMOPHILIC FACTOR, HUMAN RECOMBINANT
     Dosage: 4875 2440 IU ; FOR TREATMENT
     Route: 042
  5. KOGENATE FS [Suspect]
     Active Substance: ANTIHEMOPHILIC FACTOR, HUMAN RECOMBINANT
     Dosage: 735 U; FOR TREATMENT
     Route: 042
  6. KOGENATE FS [Suspect]
     Active Substance: ANTIHEMOPHILIC FACTOR, HUMAN RECOMBINANT
     Dosage: 1 DF 12 HOURS POST?OP FOR LEFT ANKLE DEBRIDEMENT
     Route: 042
  7. KOGENATE FS [Suspect]
     Active Substance: ANTIHEMOPHILIC FACTOR, HUMAN RECOMBINANT
     Dosage: 566 U; FOR TREATMENT
     Route: 042

REACTIONS (1)
  - Joint debridement [Recovered/Resolved]

NARRATIVE: CASE EVENT DATE: 20201207
